FAERS Safety Report 24393940 (Version 1)
Quarter: 2024Q4

REPORT INFORMATION
  Report Type: Other
  Country: NZ (occurrence: None)
  Receive Date: 20241003
  Receipt Date: 20241003
  Transmission Date: 20250115
  Serious: Yes (Hospitalization)
  Sender: BIONPHARMA
  Company Number: NZ-Bion-013935

PATIENT
  Age: 22 Year
  Sex: Male

DRUGS (1)
  1. DEXAMETHASONE [Suspect]
     Active Substance: DEXAMETHASONE
     Indication: Product used for unknown indication
     Route: 042

REACTIONS (5)
  - Rebound effect [Recovered/Resolved]
  - Hypotension [Recovered/Resolved]
  - Chest pain [Recovered/Resolved]
  - Inflammatory marker increased [Recovered/Resolved]
  - Pyrexia [Recovered/Resolved]
